FAERS Safety Report 11229601 (Version 1)
Quarter: 2015Q2

REPORT INFORMATION
  Report Type: Spontaneous
  Country: US (occurrence: US)
  Receive Date: 20150630
  Receipt Date: 20150630
  Transmission Date: 20150821
  Serious: Yes (Death)
  Sender: FDA-Public Use
  Company Number: US-AMEDRA PHARMACEUTICALS LLC-2015AMD00106

PATIENT

DRUGS (1)
  1. DEXTROAMPHETAMINE/AMPHETAMINE EXTENDED RELEASE [Suspect]
     Active Substance: AMPHETAMINE SULFATE\DEXTROAMPHETAMINE
     Dosage: UNK, ONCE
     Route: 048

REACTIONS (3)
  - Cardiac arrest [Fatal]
  - Overdose [Fatal]
  - Intentional overdose [None]
